FAERS Safety Report 4757767-2 (Version None)
Quarter: 2005Q3

REPORT INFORMATION
  Report Type: 
  Country: None (occurrence: None)
  Receive Date: 20050831
  Receipt Date: 20050722
  Transmission Date: 20060218
  Serious: Yes (Other)
  Sender: FDA-Public Use
  Company Number: PHEH2005US08173

PATIENT
  Age: 51 Year
  Sex: Female

DRUGS (2)
  1. FEMARA [Suspect]
     Indication: BREAST CANCER
     Dosage: 2.5 MG, QD
     Route: 048
     Dates: start: 20050501
  2. ZOLADEX [Concomitant]
     Indication: BREAST CANCER
     Dosage: 3.6 MG, QMO
     Dates: start: 20050501

REACTIONS (2)
  - BREAST DISCHARGE [None]
  - HOT FLUSH [None]
